FAERS Safety Report 16687996 (Version 1)
Quarter: 2019Q3

REPORT INFORMATION
  Report Type: Spontaneous
  Country: CA (occurrence: CA)
  Receive Date: 20190809
  Receipt Date: 20190809
  Transmission Date: 20191004
  Serious: Yes (Hospitalization, Other)
  Sender: FDA-Public Use
  Company Number: CA-CURIUM PHARMACEUTICALS-201000478

PATIENT
  Age: 76 Year
  Sex: Female

DRUGS (10)
  1. ANTIBIOTICS [Concomitant]
     Active Substance: UNSPECIFIED INGREDIENT
     Indication: CELLULITIS
     Dosage: UNK
     Dates: start: 20100527
  2. HYDROCHLOROTHIAZIDE. [Concomitant]
     Active Substance: HYDROCHLOROTHIAZIDE
     Indication: PRODUCT USED FOR UNKNOWN INDICATION
     Route: 048
  3. ULTRA-TECHNEKOW DTE [Suspect]
     Active Substance: TECHNETIUM TC-99M SODIUM PERTECHNETATE
     Indication: SCAN MYOCARDIAL PERFUSION
     Dosage: STRESS DOSE AT 09:13
     Route: 042
     Dates: start: 20100602, end: 20100602
  4. AMINOPHYLLINE. [Concomitant]
     Active Substance: AMINOPHYLLINE
     Indication: PRODUCT USED FOR UNKNOWN INDICATION
     Route: 042
     Dates: start: 20100602, end: 20100602
  5. MYOVIEW [Concomitant]
     Active Substance: TECHNETIUM TC-99M TETROFOSMIN
     Indication: SCAN MYOCARDIAL PERFUSION
     Dosage: STRESS DOSE
     Route: 042
     Dates: start: 20100602, end: 20100602
  6. PERSANTINE [Concomitant]
     Active Substance: DIPYRIDAMOLE
     Indication: PRODUCT USED FOR UNKNOWN INDICATION
     Route: 042
     Dates: start: 20100602, end: 20100602
  7. MYOVIEW [Concomitant]
     Active Substance: TECHNETIUM TC-99M TETROFOSMIN
     Indication: SCAN MYOCARDIAL PERFUSION
     Dosage: RESTING DOSE
     Route: 042
     Dates: start: 20100602, end: 20100602
  8. SYNTHROID [Concomitant]
     Active Substance: LEVOTHYROXINE SODIUM
     Indication: PRODUCT USED FOR UNKNOWN INDICATION
     Route: 048
  9. ULTRA-TECHNEKOW DTE [Suspect]
     Active Substance: TECHNETIUM TC-99M SODIUM PERTECHNETATE
     Indication: SCAN MYOCARDIAL PERFUSION
     Dosage: RESTING DOSE AT 07:10
     Route: 042
     Dates: start: 20100602, end: 20100602
  10. NEXIUM [Concomitant]
     Active Substance: ESOMEPRAZOLE MAGNESIUM
     Indication: PRODUCT USED FOR UNKNOWN INDICATION
     Route: 048

REACTIONS (3)
  - Renal failure [Recovering/Resolving]
  - Injection site necrosis [Not Recovered/Not Resolved]
  - Extremity necrosis [Not Recovered/Not Resolved]

NARRATIVE: CASE EVENT DATE: 2010
